FAERS Safety Report 7216103-2 (Version None)
Quarter: 2011Q1

REPORT INFORMATION
  Report Type: 
  Country: None (occurrence: None)
  Receive Date: 20110107
  Receipt Date: 20110105
  Transmission Date: 20110831
  Serious: Yes (Death)
  Sender: FDA-Public Use
  Company Number: CA-ABBOTT-10P-028-0681006-00

PATIENT
  Sex: Female
  Weight: 95.34 kg

DRUGS (3)
  1. MAVIK [Suspect]
     Indication: ESSENTIAL HYPERTENSION
     Dosage: 2MG/DAY
     Route: 048
     Dates: start: 20100714
  2. FUROSEMIDE [Concomitant]
     Indication: CARDIOVASCULAR DISORDER
     Dosage: 40 MG DAILY
     Route: 048
  3. MAVIK [Suspect]
     Dosage: UNKNOWN DOSE

REACTIONS (1)
  - DEATH [None]
